FAERS Safety Report 8128624-9 (Version None)
Quarter: 2012Q1

REPORT INFORMATION
  Report Type: 
  Country: None (occurrence: None)
  Receive Date: 20120210
  Receipt Date: 20120203
  Transmission Date: 20120608
  Serious: Yes (Hospitalization)
  Sender: FDA-Public Use
  Company Number: US-BAYER-2011-112468

PATIENT
  Age: 30 Year
  Sex: Female
  Weight: 75.737 kg

DRUGS (8)
  1. AMOXICILLIN [Concomitant]
     Dosage: UNK
     Dates: start: 20090801
  2. DROSPIRENONE AND ETHINYL ESTRADIOL [Suspect]
     Dosage: UNK
     Dates: start: 20090428, end: 20091016
  3. ALLEGRA [Concomitant]
     Dosage: UNK
     Dates: start: 20090901
  4. FEXOFENADINE [Concomitant]
     Indication: MULTIPLE ALLERGIES
     Dosage: UNK
     Dates: start: 20090601, end: 20091001
  5. CRYSELLE [Concomitant]
     Dosage: UNK
     Dates: start: 20091101
  6. LEVOTHYROXINE SODIUM [Concomitant]
     Indication: HYPOTHYROIDISM
     Dosage: 100 MCG
     Dates: start: 20090101
  7. HUMALOG [Concomitant]
     Indication: TYPE 1 DIABETES MELLITUS
     Dosage: UNK
     Dates: start: 20090101, end: 20091001
  8. PROTONIX [Concomitant]
     Dosage: UNK
     Dates: start: 20091001

REACTIONS (2)
  - INJURY [None]
  - GALLBLADDER DISORDER [None]
